FAERS Safety Report 8423259-2 (Version None)
Quarter: 2012Q2

REPORT INFORMATION
  Report Type: 
  Country: None (occurrence: None)
  Receive Date: 20120608
  Receipt Date: 20120605
  Transmission Date: 20120825
  Serious: Yes (Other)
  Sender: FDA-Public Use
  Company Number: US-BAYER-2012-043501

PATIENT
  Age: 33 Year
  Sex: Female
  Weight: 87.528 kg

DRUGS (1)
  1. MIRENA [Suspect]
     Indication: CONTRACEPTION
     Dosage: 20 MCG/24HR, CONT
     Route: 015
     Dates: start: 20110901, end: 20120501

REACTIONS (5)
  - POST PROCEDURAL HAEMORRHAGE [None]
  - MUSCLE SPASMS [None]
  - MOOD SWINGS [None]
  - DEPRESSION [None]
  - ALOPECIA [None]
